FAERS Safety Report 19172238 (Version 1)
Quarter: 2021Q2

REPORT INFORMATION
  Report Type: Spontaneous
  Country: US (occurrence: US)
  Receive Date: 20210423
  Receipt Date: 20210423
  Transmission Date: 20210717
  Serious: No
  Sender: FDA-Public Use
  Company Number: US-TEVA-2021-US-1901191

PATIENT
  Age: 47 Year
  Sex: Female

DRUGS (2)
  1. MUCUS D [Suspect]
     Active Substance: GUAIFENESIN\PSEUDOEPHEDRINE HYDROCHLORIDE
     Indication: SINUS CONGESTION
     Dosage: FORM OF ADMIN: PROLONGED?RELEASE TABLET/Q12HRS
     Route: 048
     Dates: start: 20210402, end: 20210404
  2. MUCUS D [Suspect]
     Active Substance: GUAIFENESIN\PSEUDOEPHEDRINE HYDROCHLORIDE
     Dosage: FORM OF ADMIN: PROLONGED?RELEASE TABLET/Q12HRS
     Route: 048
     Dates: start: 20210403

REACTIONS (2)
  - Rash [Recovered/Resolved]
  - Flushing [Recovered/Resolved]

NARRATIVE: CASE EVENT DATE: 20210402
